FAERS Safety Report 16137129 (Version 1)
Quarter: 2019Q2

REPORT INFORMATION
  Report Type: Other
  Country: GB (occurrence: GB)
  Receive Date: 20190401
  Receipt Date: 20190401
  Transmission Date: 20190711
  Serious: No
  Sender: FDA-Public Use
  Company Number: GB-LUPIN PHARMACEUTICALS INC.-2018-03560

PATIENT
  Age: 71 Year
  Sex: Male
  Weight: 67 kg

DRUGS (12)
  1. MIRTAZAPINE. [Concomitant]
     Active Substance: MIRTAZAPINE
     Indication: ILL-DEFINED DISORDER
     Dosage: TAKE ONE TABLET AT NIGHT TO HELP PREVENT LOW MOOD
     Route: 065
     Dates: start: 20180420
  2. FENBID [Concomitant]
     Active Substance: IBUPROFEN
     Indication: ILL-DEFINED DISORDER
     Dosage: APPLY UP TO FOUR TIMES A DAY TO HELP REDUCE PAI
     Route: 065
     Dates: start: 20171030
  3. ACCRETE D3 [Concomitant]
     Active Substance: CALCIUM CARBONATE\CHOLECALCIFEROL
     Indication: ILL-DEFINED DISORDER
     Dosage: 1 DF, BID (TAKE ONE TWICE DAILY)
     Route: 065
     Dates: start: 20171030
  4. SERTRALINE [Suspect]
     Active Substance: SERTRALINE HYDROCHLORIDE
     Indication: PRODUCT USED FOR UNKNOWN INDICATION
     Dosage: UNK
     Route: 065
     Dates: start: 20180420
  5. QVAR [Concomitant]
     Active Substance: BECLOMETHASONE DIPROPIONATE
     Indication: ILL-DEFINED DISORDER
     Dosage: 2 DF, BID (INHALE TWO PUFFS TWICE DAILY TO HELP PREVENT BR)
     Route: 045
     Dates: start: 20171030
  6. PARACETAMOL [Concomitant]
     Active Substance: ACETAMINOPHEN
     Indication: ILL-DEFINED DISORDER
     Dosage: 2 DF, PRN (TAKE TWO TABLETS UP TO FOUR TIMES A DAY WHEN REQUIRED)
     Route: 065
     Dates: start: 20171030
  7. AMLODIPINE [Concomitant]
     Active Substance: AMLODIPINE BESYLATE
     Indication: ILL-DEFINED DISORDER
     Dosage: 1 DF, QD (TAKE ONE TABLET EACH DAY)
     Route: 065
     Dates: start: 20171030
  8. LOPERAMIDE [Concomitant]
     Active Substance: LOPERAMIDE
     Indication: ILL-DEFINED DISORDER
     Dosage: 2 IF NEEDED, MAXIMUM OF 8 IN 24 HRS. ()
     Route: 065
     Dates: start: 20171030
  9. CANDESARTAN. [Concomitant]
     Active Substance: CANDESARTAN
     Indication: ILL-DEFINED DISORDER
     Dosage: BID (TO BE TAKEN TWICE DAILY)
     Route: 065
     Dates: start: 20171030
  10. VENTOLIN [Concomitant]
     Active Substance: ALBUTEROL SULFATE
     Indication: ILL-DEFINED DISORDER
     Dosage: 2 DF, PRN (INHALE 2 DOSES AS NEEDED)
     Route: 045
     Dates: start: 20171030
  11. DOXYCYCLINE. [Concomitant]
     Active Substance: DOXYCYCLINE
     Indication: ILL-DEFINED DISORDER
     Dosage: 2 IMMEDIATELY  ON 1ST DAY THEN 1 EVERY DAY AFTER ()
     Route: 065
     Dates: start: 20180228, end: 20180307
  12. MOMETASONE [Concomitant]
     Active Substance: MOMETASONE
     Indication: ILL-DEFINED DISORDER
     Dosage: 2 DF, QD (TWO SPRAYS DAILY)
     Route: 065
     Dates: start: 20171030

REACTIONS (1)
  - Diarrhoea [Recovered/Resolved]

NARRATIVE: CASE EVENT DATE: 20180420
